FAERS Safety Report 16828134 (Version 1)
Quarter: 2019Q3

REPORT INFORMATION
  Report Type: Spontaneous
  Country: US (occurrence: US)
  Receive Date: 20190919
  Receipt Date: 20190919
  Transmission Date: 20191005
  Serious: No
  Sender: FDA-Public Use
  Company Number: US-CUMBERLAND-2019-US-000003

PATIENT
  Age: 67 Year
  Sex: Female

DRUGS (1)
  1. VIBATIV [Suspect]
     Active Substance: TELAVANCIN HYDROCHLORIDE
     Dosage: DAILY DOSE REDUCED TO 870 MG ON 17 AUGUST 2019
     Route: 042
     Dates: start: 20190812

REACTIONS (1)
  - Blood creatinine increased [Recovering/Resolving]

NARRATIVE: CASE EVENT DATE: 20190817
